FAERS Safety Report 8910734 (Version 2)
Quarter: 2013Q1

REPORT INFORMATION
  Report Type: Spontaneous
  Country: GB (occurrence: None)
  Receive Date: 20121113
  Receipt Date: 20121206
  Transmission Date: 20140127
  Serious: Yes (Hospitalization, Other)
  Sender: FDA-Public Use
  Company Number: GER/UKI/12/0026519

PATIENT
  Age: 20 Year
  Sex: Male

DRUGS (2)
  1. RISPERIDONE (RISPERIDONE) [Suspect]
     Indication: SCHIZOPHRENIA, PARANOID TYPE
     Route: 048
  2. CANNABIS [Suspect]
     Indication: PRODUCT USED FOR UNKNOWN INDICATION
     Dates: start: 201108

REACTIONS (14)
  - Abnormal behaviour [None]
  - Decreased activity [None]
  - Hallucination [None]
  - Inadequate diet [None]
  - Insomnia [None]
  - Apathy [None]
  - Lethargy [None]
  - Feeling abnormal [None]
  - Weight decreased [None]
  - Irritability [None]
  - Aggression [None]
  - Treatment noncompliance [None]
  - Theft [None]
  - Drug abuse [None]
